FAERS Safety Report 11525957 (Version 4)
Quarter: 2015Q4

REPORT INFORMATION
  Report Type: Spontaneous
  Country: US (occurrence: US)
  Receive Date: 20150918
  Receipt Date: 20151110
  Transmission Date: 20160304
  Serious: No
  Sender: FDA-Public Use
  Company Number: US-GLAXOSMITHKLINE-US2015131875

PATIENT
  Sex: Female

DRUGS (3)
  1. ALBUTEROL INHALATIONAL POWDER [Concomitant]
     Active Substance: ALBUTEROL
  2. ADVAIR DISKUS [Suspect]
     Active Substance: FLUTICASONE PROPIONATE\SALMETEROL XINAFOATE
     Indication: ASTHMA
     Dosage: 1 PUFF(S), QD
     Route: 055
  3. METOPROLOL [Concomitant]
     Active Substance: METOPROLOL

REACTIONS (8)
  - Drug ineffective [Unknown]
  - Dyspnoea [Unknown]
  - Dysphonia [Unknown]
  - Product quality issue [Unknown]
  - Exposure to allergen [Unknown]
  - Respiration abnormal [Unknown]
  - Inappropriate schedule of drug administration [Unknown]
  - Hypersensitivity [Unknown]
